FAERS Safety Report 9592176 (Version 2)
Quarter: 2013Q4

REPORT INFORMATION
  Report Type: Spontaneous
  Country: US (occurrence: US)
  Receive Date: 20131004
  Receipt Date: 20131109
  Transmission Date: 20140711
  Serious: Yes (Death, Other)
  Sender: FDA-Public Use
  Company Number: US-AMGEN-USASP2013068348

PATIENT
  Age: 90 Year
  Sex: Female
  Weight: 57.6 kg

DRUGS (15)
  1. PROLIA [Suspect]
     Indication: OSTEOPOROSIS POSTMENOPAUSAL
     Dosage: UNK
     Route: 065
  2. REMERON [Concomitant]
     Dosage: 30 MG, 1 TAB, QHS
     Route: 048
  3. PLAVIX [Concomitant]
     Dosage: 75 MG, QD, 1 TAB
     Route: 048
  4. TOBRADEX [Concomitant]
     Dosage: 0.3-0.5 %
     Route: 047
  5. TRAVATAN Z [Concomitant]
     Dosage: 0.004 %, QHS, 1 DROP IN BOTH EYES EVERY EVENING
     Route: 047
  6. MULTIVITAMINS, PLAIN [Concomitant]
     Route: 048
  7. CALCIUM [Concomitant]
  8. PHENERGAN WITH CODEINE             /01129901/ [Concomitant]
     Dosage: 5 ML, EVERY 4 TO 6 HOURS, AS NECESSARY
     Route: 048
  9. VENTOLIN HFA [Concomitant]
     Dosage: ORALLY INHALE 2 PUFFS BY MOUTH EVERY 4 TO 6 HOURS, AS NECESSARY
  10. CALCIUM CARBONATE W/COLECALCIFEROL [Concomitant]
     Route: 048
  11. VITAMIN D3 [Concomitant]
     Dosage: 2000 UNIT, UNK
     Route: 048
  12. FISH OIL OMEGA 3 [Concomitant]
     Dosage: 1000 MG, QD
     Route: 048
  13. COZAAR [Concomitant]
     Dosage: 50 MG, QD, 1 TAB
     Route: 048
  14. AZOPT [Concomitant]
     Dosage: 1 %, BID, 1 DROP IN BOTH EYES
     Route: 047
  15. ASPIRIN [Concomitant]
     Dosage: 81 MG, QD
     Route: 048

REACTIONS (18)
  - Carotid artery stenosis [Unknown]
  - Urinary tract infection [Unknown]
  - Glaucoma [Unknown]
  - Aortic valve disease [Unknown]
  - Blindness [Unknown]
  - Macular degeneration [Unknown]
  - Sepsis [Fatal]
  - Bronchopneumonia [Fatal]
  - Cardio-respiratory arrest [Fatal]
  - Cough [Unknown]
  - Dyspnoea [Unknown]
  - Essential hypertension [Unknown]
  - Dry eye [Unknown]
  - Cataract [Unknown]
  - Vitamin D deficiency [Unknown]
  - Parosmia [Unknown]
  - Dysgeusia [Unknown]
  - Anaemia [Unknown]
